FAERS Safety Report 8456865-X (Version None)
Quarter: 2012Q2

REPORT INFORMATION
  Report Type: 
  Country: None (occurrence: None)
  Receive Date: 20120621
  Receipt Date: 20120612
  Transmission Date: 20120825
  Serious: Yes (Other)
  Sender: FDA-Public Use
  Company Number: US-ASTRAZENECA-2012SE39465

PATIENT
  Age: 56 Year
  Sex: Male

DRUGS (7)
  1. LISINOPRIL [Suspect]
     Route: 048
  2. ASPIRIN [Concomitant]
     Route: 048
  3. ATACAND [Concomitant]
     Route: 048
  4. PRAVACHOL [Concomitant]
     Route: 048
  5. SINGULAIR [Concomitant]
     Dosage: IN THE EVENING
     Route: 048
  6. CHROMIUM PICOLINATE [Concomitant]
     Route: 048
  7. LEVEMIR [Concomitant]
     Dosage: 100 UNIT/ML SOLUTION, 50 UNITS AND TITRATE 2 UNITS DAILY UNTIL FBS 120 S AND HOLD AT DOSE SC
     Route: 058

REACTIONS (1)
  - ANGIOEDEMA [None]
